FAERS Safety Report 8151210-1 (Version None)
Quarter: 2012Q1

REPORT INFORMATION
  Report Type: 
  Country: None (occurrence: None)
  Receive Date: 20120220
  Receipt Date: 20120214
  Transmission Date: 20120608
  Serious: Yes (Death)
  Sender: FDA-Public Use
  Company Number: JP-ASTRAZENECA-2011SE66611

PATIENT
  Age: 26236 Day
  Sex: Male

DRUGS (31)
  1. SOLYUGEN F [Concomitant]
     Route: 042
     Dates: start: 20111102, end: 20111102
  2. DOPAMINE HCL [Concomitant]
     Indication: PERCUTANEOUS CORONARY INTERVENTION
     Route: 042
     Dates: start: 20111101, end: 20111101
  3. NITROGLYCERIN [Concomitant]
     Indication: ACUTE CORONARY SYNDROME
     Route: 060
     Dates: start: 20111101, end: 20111101
  4. LANSOPRAZOLE [Concomitant]
     Indication: PROPHYLAXIS AGAINST GASTROINTESTINAL ULCER
     Route: 048
     Dates: start: 20111102, end: 20111103
  5. YUCION-S [Concomitant]
     Indication: MYOCARDIAL INFARCTION
     Route: 042
     Dates: start: 20111103, end: 20111103
  6. PRIMPERAN TAB [Concomitant]
     Dosage: 1 A DAILY
     Route: 042
     Dates: start: 20111102, end: 20111102
  7. LIVALO [Concomitant]
     Indication: HYPERCHOLESTEROLAEMIA
     Route: 048
     Dates: start: 20111101, end: 20111103
  8. LOXONIN [Concomitant]
     Indication: RHEUMATOID ARTHRITIS
     Route: 048
     Dates: start: 20111028, end: 20111031
  9. PLACEBO [Suspect]
     Indication: ACUTE CORONARY SYNDROME
     Route: 048
     Dates: start: 20111101
  10. DOPAMINE HCL [Concomitant]
     Route: 042
     Dates: start: 20111104, end: 20111104
  11. LOXONIN [Concomitant]
     Route: 048
     Dates: start: 20111102, end: 20111102
  12. ASPIRIN [Suspect]
     Route: 048
     Dates: start: 20111102, end: 20111102
  13. ATROPINE [Concomitant]
     Indication: PERCUTANEOUS CORONARY INTERVENTION
     Route: 042
     Dates: start: 20111101, end: 20111101
  14. PRIMPERAN TAB [Concomitant]
     Indication: PERCUTANEOUS CORONARY INTERVENTION
     Route: 042
     Dates: start: 20111101, end: 20111101
  15. NOR-ADRENALIN [Concomitant]
     Indication: PERCUTANEOUS CORONARY INTERVENTION
     Route: 042
     Dates: start: 20111101, end: 20111101
  16. NOR-ADRENALIN [Concomitant]
     Route: 042
     Dates: start: 20111102, end: 20111102
  17. LASIX [Concomitant]
     Dosage: 0.5  A DAILY
     Route: 042
     Dates: start: 20111102, end: 20111102
  18. HEPARIN [Concomitant]
     Route: 013
     Dates: start: 20111101, end: 20111101
  19. ASPIRIN [Suspect]
     Indication: ACUTE CORONARY SYNDROME
     Route: 048
     Dates: start: 20111101, end: 20111101
  20. NOR-ADRENALIN [Concomitant]
     Dosage: 1 A DAILY
     Route: 042
     Dates: start: 20111102, end: 20111102
  21. PREDNISOLONE [Concomitant]
     Indication: RHEUMATOID ARTHRITIS
     Route: 048
     Dates: start: 20111031, end: 20111103
  22. CARBOCAIN [Concomitant]
     Indication: PERCUTANEOUS CORONARY INTERVENTION
     Dosage: 1 A DAILY
     Route: 042
     Dates: start: 20111101, end: 20111101
  23. ISOSORBIDE DINITRATE [Concomitant]
     Indication: PERCUTANEOUS CORONARY INTERVENTION
     Route: 042
     Dates: start: 20111101, end: 20111101
  24. DOPAMINE HCL [Concomitant]
     Route: 042
     Dates: start: 20111103, end: 20111103
  25. FOLIC ACID [Concomitant]
     Indication: VITAMIN SUPPLEMENTATION
     Route: 048
     Dates: start: 20111028, end: 20111103
  26. LASIX [Concomitant]
     Indication: MYOCARDIAL INFARCTION
     Dosage: 1 A DAILY
     Route: 042
     Dates: start: 20111102, end: 20111102
  27. PLAVIX [Suspect]
     Indication: ACUTE CORONARY SYNDROME
     Route: 048
     Dates: start: 20111101
  28. SOLYUGEN F [Concomitant]
     Indication: PERCUTANEOUS CORONARY INTERVENTION
     Route: 042
     Dates: start: 20111101, end: 20111101
  29. SOLYUGEN F [Concomitant]
     Route: 042
     Dates: start: 20111103, end: 20111103
  30. DOPAMINE HCL [Concomitant]
     Route: 042
     Dates: start: 20111102, end: 20111102
  31. NOR-ADRENALIN [Concomitant]
     Route: 042
     Dates: start: 20111103, end: 20111103

REACTIONS (1)
  - PULSELESS ELECTRICAL ACTIVITY [None]
